FAERS Safety Report 7892516-0 (Version None)
Quarter: 2011Q4

REPORT INFORMATION
  Report Type: 
  Country: None (occurrence: None)
  Receive Date: 20111104
  Receipt Date: 20111022
  Transmission Date: 20120403
  Serious: Yes (Hospitalization)
  Sender: FDA-Public Use
  Company Number: DE-PAR PHARMACEUTICAL, INC-2011SCPR003377

PATIENT

DRUGS (6)
  1. LEVOTHYROXINE SODIUM [Interacting]
     Dosage: 350 A?G, / DAY
     Route: 065
  2. LEVOTHYROXINE SODIUM [Interacting]
     Indication: PRODUCT USED FOR UNKNOWN INDICATION
     Dosage: 50 A?G / DAY, INCREASED IN 50 A?G INCREMENTS APPROXIMATELY EVERY 3 DAYS
     Route: 065
  3. LITHIUM CITRATE [Concomitant]
     Indication: PRODUCT USED FOR UNKNOWN INDICATION
     Dosage: UNK, UNKNOWN
     Route: 065
  4. TRANYLCYPROMINE SULFATE [Interacting]
     Dosage: 40 MG, / DAY
     Route: 065
  5. TRANYLCYPROMINE SULFATE [Suspect]
     Indication: PRODUCT USED FOR UNKNOWN INDICATION
     Dosage: 60 MG, / DAY
     Route: 065
  6. LEVOTHYROXINE SODIUM [Interacting]
     Dosage: 300 A?G, / DAY
     Route: 065

REACTIONS (3)
  - DRUG INTERACTION [None]
  - HYPERTHYROIDISM [None]
  - MYOCARDIAL INFARCTION [None]
